FAERS Safety Report 9717245 (Version 2)
Quarter: 2013Q4

REPORT INFORMATION
  Report Type: Spontaneous
  Country: US (occurrence: US)
  Receive Date: 20131127
  Receipt Date: 20131219
  Transmission Date: 20140711
  Serious: Yes (Other)
  Sender: FDA-Public Use
  Company Number: US-FRI-1000051767

PATIENT
  Age: 92 Year
  Sex: Male

DRUGS (8)
  1. TUDORZA PRESSAIR [Suspect]
     Indication: CHRONIC OBSTRUCTIVE PULMONARY DISEASE
     Dosage: 800 MCG
     Route: 055
     Dates: start: 201310
  2. FUROSEMIDE [Concomitant]
     Dosage: 20 MG
  3. DILTIAZEM [Concomitant]
     Dosage: 240 MG
  4. COZAAR [Concomitant]
     Dosage: 50 MG
  5. LABETALOL [Concomitant]
     Dosage: 200 MG
  6. PREDNISONE [Concomitant]
     Dosage: 5 MG
  7. ASPIRIN [Concomitant]
     Dosage: 81 MG
  8. PRILOSEC [Concomitant]
     Dosage: DAILY

REACTIONS (1)
  - Haematoma [Recovering/Resolving]
